FAERS Safety Report 8001332-0 (Version None)
Quarter: 2011Q4

REPORT INFORMATION
  Report Type: 
  Country: None (occurrence: None)
  Receive Date: 20111222
  Receipt Date: 20111214
  Transmission Date: 20120403
  Serious: Yes (Hospitalization)
  Sender: FDA-Public Use
  Company Number: US-BAYER-2011-034719

PATIENT
  Age: 38 Year
  Sex: Female
  Weight: 61 kg

DRUGS (7)
  1. YAZ [Suspect]
     Indication: PREMENSTRUAL SYNDROME
  2. NAPROXEN [Concomitant]
     Dosage: UNK UNK, PRN
     Dates: start: 20070101
  3. RHINOCORT [Concomitant]
     Indication: NASOPHARYNGITIS
     Dosage: UNK
     Dates: start: 20070501, end: 20110601
  4. PATANOL [Concomitant]
     Indication: CONJUNCTIVITIS INFECTIVE
     Dosage: UNK
     Dates: start: 20070501, end: 20110601
  5. AMBIEN [Concomitant]
     Indication: INSOMNIA
     Dosage: 10 MG, UNK
     Dates: start: 20090901, end: 20091201
  6. YAZ [Suspect]
     Indication: CONTRACEPTION
     Dosage: UNK
     Route: 048
     Dates: start: 20081201, end: 20091201
  7. IBUPROFEN [Concomitant]
     Dosage: UNK UNK, PRN
     Dates: start: 20070101

REACTIONS (7)
  - EMOTIONAL DISTRESS [None]
  - GENERAL PHYSICAL HEALTH DETERIORATION [None]
  - ANHEDONIA [None]
  - INJURY [None]
  - ANXIETY [None]
  - PELVIC VENOUS THROMBOSIS [None]
  - PAIN [None]
